FAERS Safety Report 8584842-7 (Version None)
Quarter: 2012Q2

REPORT INFORMATION
  Report Type: 
  Country: None (occurrence: None)
  Receive Date: 20120423
  Receipt Date: 20091230
  Transmission Date: 20120825
  Serious: Yes (Other)
  Sender: FDA-Public Use
  Company Number: PHEH2009US14138

PATIENT
  Age: 84 Year
  Sex: Female

DRUGS (12)
  1. CYANOCOBALAMIN [Concomitant]
  2. CALCIUM CARBONATE [Concomitant]
  3. BENAZEPRIL HYDROCHLORIDE [Concomitant]
  4. METFFORMIN HYDROCHLORIDE [Concomitant]
  5. SKELAXIN [Concomitant]
  6. CENTRUM SILVER (ASCORBIC ACID, CALCIUM, MINERALS NOS, RETINOL, TOCOPHE [Concomitant]
  7. CLINDAMYCIN [Concomitant]
  8. EXJADE [Suspect]
     Indication: MALIGNANT LYMPHOID NEOPLASM
     Dosage: 500 MG, TID, ORAL
     Route: 048
     Dates: start: 20090928, end: 20091013
  9. COREG [Concomitant]
  10. ACIPHEX (RABAPRAZOLE SODIUM) [Concomitant]
  11. VITAMIN E [Concomitant]
  12. ACTONEL [Concomitant]

REACTIONS (5)
  - LABORATORY TEST ABNORMAL [None]
  - RENAL DISORDER [None]
  - DIARRHOEA [None]
  - VOMITING [None]
  - RENAL IMPAIRMENT [None]
